FAERS Safety Report 19156759 (Version 4)
Quarter: 2021Q2

REPORT INFORMATION
  Report Type: Spontaneous
  Country: US (occurrence: US)
  Receive Date: 20210420
  Receipt Date: 20210429
  Transmission Date: 20210717
  Serious: No
  Sender: FDA-Public Use
  Company Number: US-AMGEN-USASP2021058346

PATIENT
  Age: 76 Year
  Sex: Female
  Weight: 52.61 kg

DRUGS (1)
  1. NEULASTA [Suspect]
     Active Substance: PEGFILGRASTIM
     Indication: NEUTROPENIA
     Dosage: UNK
     Route: 065

REACTIONS (3)
  - Incorrect dose administered by device [Unknown]
  - White blood cell count decreased [Unknown]
  - Device malfunction [Unknown]

NARRATIVE: CASE EVENT DATE: 20210413
